FAERS Safety Report 26145431 (Version 1)
Quarter: 2025Q4

REPORT INFORMATION
  Report Type: Spontaneous
  Country: US (occurrence: US)
  Receive Date: 20251211
  Receipt Date: 20251211
  Transmission Date: 20260117
  Serious: No
  Sender: BAYER HEALTHCARE LLC
  Company Number: US-BAYER-2025A163127

PATIENT

DRUGS (1)
  1. MIRALAX [Suspect]
     Active Substance: POLYETHYLENE GLYCOL 3350
     Indication: Prostatectomy
     Dosage: MIX 8.3 OUNCES OF MIRALAX IN 64 OUNCES OF GATORADE AND DRINK OVER 2 HOURS

REACTIONS (1)
  - Product prescribing issue [Unknown]
